FAERS Safety Report 18147161 (Version 1)
Quarter: 2020Q3

REPORT INFORMATION
  Report Type: Spontaneous
  Country: FR (occurrence: FR)
  Receive Date: 20200813
  Receipt Date: 20200813
  Transmission Date: 20201103
  Serious: Yes (Death)
  Sender: FDA-Public Use
  Company Number: FR-ABBVIE-20K-056-3524368-00

PATIENT
  Age: 53 Year
  Sex: Male

DRUGS (1)
  1. MAVIRET [Suspect]
     Active Substance: GLECAPREVIR\PIBRENTASVIR
     Indication: CHRONIC HEPATITIS C
     Dosage: 300MG/120MG 1 1 JOUR
     Route: 048
     Dates: start: 20200527, end: 20200603

REACTIONS (2)
  - Hepatic cirrhosis [Fatal]
  - Hepatitis acute [Fatal]

NARRATIVE: CASE EVENT DATE: 20200602
